FAERS Safety Report 7315880-X (Version None)
Quarter: 2011Q1

REPORT INFORMATION
  Report Type: 
  Country: None (occurrence: None)
  Receive Date: 20110225
  Receipt Date: 20110214
  Transmission Date: 20110831
  Serious: Yes (Other)
  Sender: FDA-Public Use
  Company Number: ES-ROCHE-759442

PATIENT
  Age: 61 Year
  Sex: Male

DRUGS (7)
  1. BEVACIZUMAB [Suspect]
     Dosage: FORM: INFUSION
     Route: 065
  2. FOLINIC ACID [Concomitant]
     Dosage: 6 CYCLES
     Dates: start: 20080601, end: 20080901
  3. OXALIPLATIN [Concomitant]
     Dosage: 6 CYCLES
     Dates: start: 20080601, end: 20080901
  4. FLUOROURACIL [Concomitant]
     Dosage: 6 CYCLES
     Dates: start: 20080601, end: 20080901
  5. OXALIPLATIN [Concomitant]
     Dates: start: 20090501
  6. FLUOROURACIL [Concomitant]
     Dates: start: 20090501
  7. FOLINIC ACID [Concomitant]
     Dates: start: 20090501

REACTIONS (1)
  - TOXIC SKIN ERUPTION [None]
